FAERS Safety Report 24785340 (Version 1)
Quarter: 2024Q4

REPORT INFORMATION
  Report Type: Spontaneous
  Country: FR (occurrence: FR)
  Receive Date: 20241228
  Receipt Date: 20241228
  Transmission Date: 20250114
  Serious: Yes (Life-Threatening)
  Sender: TEVA
  Company Number: None

PATIENT
  Age: 62 Year
  Sex: Male

DRUGS (2)
  1. CIPROFLOXACIN [Suspect]
     Active Substance: CIPROFLOXACIN
     Indication: Bronchitis
     Dosage: CIPROFLOXACIN HYDROCHLORIDE
     Route: 048
     Dates: start: 202401
  2. CIPROFLOXACIN [Suspect]
     Active Substance: CIPROFLOXACIN
     Indication: Bronchitis
     Dosage: CIPROFLOXACIN HYDROCHLORIDE
     Route: 048
     Dates: start: 202409

REACTIONS (2)
  - Peripheral artery aneurysm rupture [Recovered/Resolved with Sequelae]
  - Shock haemorrhagic [Recovered/Resolved with Sequelae]

NARRATIVE: CASE EVENT DATE: 20241129
